FAERS Safety Report 5983107-7 (Version None)
Quarter: 2008Q4

REPORT INFORMATION
  Report Type: 
  Country: None (occurrence: None)
  Receive Date: 20081208
  Receipt Date: 20081127
  Transmission Date: 20090506
  Serious: Yes (Death)
  Sender: FDA-Public Use
  Company Number: GB-TEVA-181459ISR

PATIENT
  Age: 77 Year
  Sex: Female

DRUGS (4)
  1. AMINOPHYLLINE [Suspect]
     Route: 048
     Dates: start: 20080810
  2. GABAPENTIN [Suspect]
     Route: 048
     Dates: start: 20080811
  3. SIMVASTATIN [Suspect]
     Route: 048
     Dates: start: 20060101
  4. CARBOCISTEINE [Suspect]
     Route: 048
     Dates: start: 20080810

REACTIONS (1)
  - RENAL FAILURE [None]
